FAERS Safety Report 6322713-7 (Version None)
Quarter: 2009Q3

REPORT INFORMATION
  Report Type: 
  Country: None (occurrence: None)
  Receive Date: 20090824
  Receipt Date: 20090330
  Transmission Date: 20100115
  Serious: No
  Sender: FDA-Public Use
  Company Number: US-ABBOTT-09P-163-0562298-00

PATIENT
  Sex: Male

DRUGS (3)
  1. NIASPAN [Suspect]
     Indication: BLOOD CHOLESTEROL INCREASED
     Route: 048
     Dates: start: 20090201
  2. COUMADIN [Concomitant]
     Indication: CORONARY ARTERY BYPASS
     Dates: start: 20090301
  3. COUMADIN [Concomitant]
     Route: 048

REACTIONS (2)
  - PROTHROMBIN TIME ABNORMAL [None]
  - RASH MACULAR [None]
